FAERS Safety Report 8206893-4 (Version None)
Quarter: 2012Q1

REPORT INFORMATION
  Report Type: 
  Country: None (occurrence: None)
  Receive Date: 20120306
  Receipt Date: 20120227
  Transmission Date: 20120608
  Serious: Yes (Other)
  Sender: FDA-Public Use
  Company Number: 2012031423

PATIENT
  Age: 30 Month
  Sex: Male

DRUGS (1)
  1. VIVAGLOBIN [Suspect]
     Indication: SELECTIVE IGG SUBCLASS DEFICIENCY
     Route: 058

REACTIONS (2)
  - AREFLEXIA [None]
  - ABASIA [None]
